FAERS Safety Report 21311504 (Version 5)
Quarter: 2023Q4

REPORT INFORMATION
  Report Type: Other
  Country: CA (occurrence: CA)
  Receive Date: 20220909
  Receipt Date: 20231207
  Transmission Date: 20240110
  Serious: No
  Sender: FDA-Public Use
  Company Number: CA-TOLMAR, INC.-22CA036420

PATIENT
  Age: 77 Year
  Sex: Male

DRUGS (7)
  1. ELIGARD [Suspect]
     Active Substance: LEUPROLIDE ACETATE
     Indication: Prostate cancer
     Dosage: 30 MILLIGRAM, Q 4 MONTH
     Route: 058
     Dates: start: 20220509
  2. ELIGARD [Suspect]
     Active Substance: LEUPROLIDE ACETATE
     Dosage: 30 MILLIGRAM, Q 4 MONTH
     Route: 058
     Dates: start: 20220830
  3. ELIGARD [Suspect]
     Active Substance: LEUPROLIDE ACETATE
     Dosage: 30 MILLIGRAM, Q 4 MONTH
     Route: 058
     Dates: start: 20221220
  4. ELIGARD [Suspect]
     Active Substance: LEUPROLIDE ACETATE
     Dosage: 30 MILLIGRAM, Q 4 MONTH
     Route: 058
     Dates: start: 20230411
  5. ELIGARD [Suspect]
     Active Substance: LEUPROLIDE ACETATE
     Dosage: 30 MILLIGRAM, Q 4 MONTH
     Route: 058
     Dates: start: 20230801
  6. ELIGARD [Suspect]
     Active Substance: LEUPROLIDE ACETATE
     Dosage: 30 MILLIGRAM, Q 4 MONTH
     Route: 058
     Dates: start: 20231121
  7. UNSPECIFIED INGREDIENT [Concomitant]
     Active Substance: UNSPECIFIED INGREDIENT
     Indication: Product used for unknown indication

REACTIONS (7)
  - Gastrointestinal disorder [Recovering/Resolving]
  - Anal incontinence [Recovered/Resolved]
  - Diarrhoea [Recovered/Resolved]
  - Hot flush [Not Recovered/Not Resolved]
  - Injection site pain [Recovered/Resolved]
  - Weight increased [Unknown]
  - Injection site mass [Unknown]

NARRATIVE: CASE EVENT DATE: 20220830
